FAERS Safety Report 8544288 (Version 5)
Quarter: 2013Q1

REPORT INFORMATION
  Report Type: Spontaneous
  Country: GB (occurrence: GB)
  Receive Date: 20120503
  Receipt Date: 20130225
  Transmission Date: 20140127
  Serious: Yes (Death, Hospitalization)
  Sender: FDA-Public Use
  Company Number: GB-VERTEX PHARMACEUTICALS INC.-000000000000000572

PATIENT
  Age: 43 Year
  Sex: Male
  Weight: 68 kg

DRUGS (7)
  1. INCIVO [Suspect]
     Indication: CHRONIC HEPATITIS C
     Dosage: DOSAGE FORM: TABLET
     Route: 048
     Dates: start: 20120418, end: 20120420
  2. PEGASYS [Suspect]
     Indication: CHRONIC HEPATITIS C
     Dosage: DOSAGE FORM: UNSPECIFIED
     Route: 058
     Dates: start: 20120418, end: 20120420
  3. RIBAVIRIN [Suspect]
     Indication: CHRONIC HEPATITIS C
     Dosage: DOSAGE FORM: UNSPECIFIED
     Route: 048
     Dates: start: 20120418, end: 20120420
  4. DIAZEPAM [Concomitant]
     Indication: ANXIETY
     Dosage: DOSAGE FORM: UNSPECIFIED
     Route: 048
     Dates: end: 20120421
  5. SALBUTAMOL [Concomitant]
     Indication: ASTHMA
     Dosage: DOSAGE FORM: INHALATION
     Route: 055
     Dates: end: 20120421
  6. OMEPRAZOLE [Concomitant]
     Indication: DYSPEPSIA
     Dosage: 20 MG, QD
     Route: 048
     Dates: end: 20120421
  7. BECOTIDE [Concomitant]
     Indication: ASTHMA
     Dosage: DOSAGE FORM: INHALATION
     Route: 055
     Dates: end: 20120421

REACTIONS (4)
  - Brain injury [Fatal]
  - Cardiac arrest [Fatal]
  - Bronchopneumonia [Fatal]
  - Cardiac arrest [Recovered/Resolved]
